FAERS Safety Report 4849974-5 (Version None)
Quarter: 2005Q4

REPORT INFORMATION
  Report Type: 
  Country: None (occurrence: None)
  Receive Date: 20051102
  Receipt Date: 20050822
  Transmission Date: 20060501
  Serious: No
  Sender: FDA-Public Use
  Company Number: 200511276BWH

PATIENT
  Age: 71 Year
  Sex: Male

DRUGS (2)
  1. LEVITRA [Suspect]
     Indication: SEXUAL DYSFUNCTION
     Dosage: 20 MG, OW, ORAL
     Route: 048
  2. TOPROL-XL [Concomitant]

REACTIONS (2)
  - EJACULATION FAILURE [None]
  - ERECTION INCREASED [None]
